FAERS Safety Report 16444768 (Version 10)
Quarter: 2020Q3

REPORT INFORMATION
  Report Type: Report from Study
  Country: FR (occurrence: FR)
  Receive Date: 20190618
  Receipt Date: 20200804
  Transmission Date: 20201104
  Serious: Yes (Hospitalization)
  Sender: FDA-Public Use
  Company Number: FR-ROCHE-2261185

PATIENT
  Age: 74 Year
  Sex: Male
  Weight: 66 kg

DRUGS (38)
  1. PREDNISONE. [Suspect]
     Active Substance: PREDNISONE
     Indication: DIFFUSE LARGE B-CELL LYMPHOMA
     Dosage: DATE OF MOST RECENT DOSE OF PREDNISONE ON 21/JAN/2019 (100 MG), 22/JAN/2019 (500 MG), 26/FEB/2019 (8
     Route: 048
     Dates: start: 20181026
  2. ZOPHREN [Concomitant]
     Active Substance: ONDANSETRON
     Route: 042
     Dates: start: 20181026
  3. POLARAMINE [Concomitant]
     Active Substance: DEXCHLORPHENIRAMINE MALEATE
     Route: 042
     Dates: start: 20181026
  4. POLARAMINE [Concomitant]
     Active Substance: DEXCHLORPHENIRAMINE MALEATE
     Route: 042
     Dates: start: 20190122, end: 20190122
  5. POLARAMINE [Concomitant]
     Active Substance: DEXCHLORPHENIRAMINE MALEATE
     Route: 042
     Dates: start: 20190225, end: 20190225
  6. PARACETAMOL [Concomitant]
     Active Substance: ACETAMINOPHEN
     Indication: PREMEDICATION
     Route: 042
     Dates: start: 20181026
  7. METHYLPREDNISOLONE. [Concomitant]
     Active Substance: METHYLPREDNISOLONE
     Indication: PREMEDICATION
     Route: 042
     Dates: start: 20190225, end: 20190225
  8. BACTRIM [Concomitant]
     Active Substance: SULFAMETHOXAZOLE\TRIMETHOPRIM
     Indication: PROPHYLAXIS
     Route: 048
     Dates: start: 20190311, end: 20190410
  9. AMLODIPINE [Concomitant]
     Active Substance: AMLODIPINE BESYLATE
     Indication: HYPERTENSION
     Route: 048
     Dates: start: 201809
  10. POLARAMINE [Concomitant]
     Active Substance: DEXCHLORPHENIRAMINE MALEATE
     Route: 042
     Dates: start: 20190408, end: 20190408
  11. VORICONAZOLE. [Concomitant]
     Active Substance: VORICONAZOLE
     Route: 048
     Dates: start: 20190202, end: 20190311
  12. POLATUZUMAB VEDOTIN. [Suspect]
     Active Substance: POLATUZUMAB VEDOTIN
     Indication: DIFFUSE LARGE B-CELL LYMPHOMA
     Dosage: DATE OF MOST RECENT DOSE OF BLINDED POLATUZUMAB VEDOTIN ON 22/JAN/2019, 21/JAN/2019,26/FEB/2019
     Route: 042
     Dates: start: 20181026
  13. DOLIPRANE [Concomitant]
     Active Substance: ACETAMINOPHEN
     Indication: PREMEDICATION
     Route: 042
     Dates: start: 20181026
  14. PARACETAMOL [Concomitant]
     Active Substance: ACETAMINOPHEN
     Route: 048
     Dates: start: 20190122, end: 20190122
  15. PREDNISONE. [Concomitant]
     Active Substance: PREDNISONE
     Indication: PREMEDICATION
     Route: 048
     Dates: start: 20190123, end: 20190126
  16. METHYLPREDNISOLONE. [Concomitant]
     Active Substance: METHYLPREDNISOLONE
     Route: 042
     Dates: start: 20190408, end: 20190408
  17. ZARZIO [Concomitant]
     Active Substance: FILGRASTIM
     Indication: PROPHYLAXIS
     Route: 058
     Dates: start: 20190127, end: 20190131
  18. VALACYCLOVIR [Concomitant]
     Active Substance: VALACYCLOVIR HYDROCHLORIDE
     Indication: PROPHYLAXIS
     Route: 048
     Dates: start: 20190311, end: 20190410
  19. TAZOCILLINE [Concomitant]
     Active Substance: PIPERACILLIN SODIUM\TAZOBACTAM SODIUM
     Route: 048
     Dates: start: 20190225, end: 20190311
  20. TAZOCILLINE [Concomitant]
     Active Substance: PIPERACILLIN SODIUM\TAZOBACTAM SODIUM
     Route: 048
     Dates: start: 20190202, end: 20190311
  21. CASPOFUNGINE [Concomitant]
     Active Substance: CASPOFUNGIN
     Route: 048
     Dates: start: 20190225, end: 20190311
  22. ESOMEPRAZOLE. [Concomitant]
     Active Substance: ESOMEPRAZOLE MAGNESIUM
     Indication: GASTROOESOPHAGEAL REFLUX DISEASE
     Route: 048
     Dates: start: 2018
  23. DOLIPRANE [Concomitant]
     Active Substance: ACETAMINOPHEN
     Route: 048
     Dates: start: 20190408, end: 20190408
  24. PREDNISONE. [Concomitant]
     Active Substance: PREDNISONE
     Dosage: AS PREMEDICATION
     Route: 048
     Dates: start: 20190226, end: 20190226
  25. SULFAMETHOXAZOLE/TRIMETHOPRIM [Concomitant]
     Active Substance: SULFAMETHOXAZOLE\TRIMETHOPRIM
     Dosage: ANTI BACTERIAL INFECTION PROPHYLAXIS?800/160 MG
     Route: 048
     Dates: start: 20181029
  26. POLARAMINE [Concomitant]
     Active Substance: DEXCHLORPHENIRAMINE MALEATE
     Route: 042
     Dates: start: 20190319, end: 20190319
  27. CEFUROXIME. [Concomitant]
     Active Substance: CEFUROXIME
     Indication: BRONCHITIS
     Route: 048
     Dates: start: 20190118, end: 20190124
  28. VALACICLOVIR [Concomitant]
     Active Substance: VALACYCLOVIR HYDROCHLORIDE
     Dosage: ANTIVIRALPROPHYLAXIS
     Route: 048
     Dates: start: 20181029
  29. RITUXIMAB. [Suspect]
     Active Substance: RITUXIMAB
     Indication: DIFFUSE LARGE B-CELL LYMPHOMA
     Dosage: DATE OF MOST RECENT DOSE OF RITUXIMAB PRIOR TO SAE ONSET: 21/JAN/2019 (88.0 MG) 22/JAN/2019 (690 MG)
     Route: 042
     Dates: start: 20181026
  30. DOXORUBICIN [Suspect]
     Active Substance: DOXORUBICIN
     Indication: DIFFUSE LARGE B-CELL LYMPHOMA
     Dosage: DATE OF MOST RECENT DOSE OF DOXORUBICIN ON 21/JAN/2019 (88 MG), 22/JAN/2019 (92 MG), 26/FEB/2019 (88
     Route: 042
     Dates: start: 20181027
  31. CYCLOPHOSPHAMIDE. [Suspect]
     Active Substance: CYCLOPHOSPHAMIDE
     Indication: DIFFUSE LARGE B-CELL LYMPHOMA
     Dosage: DATE OF MOST RECENT DOSE OF CYCLOPHOSPHAMIDE ON 21/JAN/2019 (1320 MG) 22/JAN/2019 (1380 MG), 26/FEB/
     Route: 042
     Dates: start: 20181027
  32. DOLIPRANE [Concomitant]
     Active Substance: ACETAMINOPHEN
     Dosage: PREMEDICATION
     Route: 048
     Dates: start: 20190319, end: 20190319
  33. PARACETAMOL [Concomitant]
     Active Substance: ACETAMINOPHEN
     Route: 048
     Dates: start: 20190225, end: 20190225
  34. METHYLPREDNISOLONE. [Concomitant]
     Active Substance: METHYLPREDNISOLONE
     Route: 042
     Dates: start: 20190319, end: 20190319
  35. VORICONAZOLE. [Concomitant]
     Active Substance: VORICONAZOLE
     Route: 048
     Dates: start: 20190201, end: 20190201
  36. PLACEBO [Suspect]
     Active Substance: UNSPECIFIED INGREDIENT
     Indication: DIFFUSE LARGE B-CELL LYMPHOMA
     Dosage: DATE OF MOST RECENT DOSE OF BLINDED VINCRISTINE ON 22/JAN/2019, 21/JAN/2019
     Route: 042
     Dates: start: 20181026
  37. CIPROFLOXACINE [Concomitant]
     Active Substance: CIPROFLOXACIN
     Indication: BRONCHITIS
     Route: 048
     Dates: start: 20190118, end: 20190124
  38. CASPOFUNGINE [Concomitant]
     Active Substance: CASPOFUNGIN
     Route: 048
     Dates: start: 20190202, end: 20190311

REACTIONS (3)
  - Bronchopulmonary aspergillosis [Recovered/Resolved]
  - Influenza [Recovered/Resolved]
  - Aspergillus infection [Recovered/Resolved]

NARRATIVE: CASE EVENT DATE: 20190129
